FAERS Safety Report 6767262-7 (Version None)
Quarter: 2010Q2

REPORT INFORMATION
  Report Type: 
  Country: None (occurrence: None)
  Receive Date: 20100614
  Receipt Date: 20100604
  Transmission Date: 20101027
  Serious: Yes (Other)
  Sender: FDA-Public Use
  Company Number: HQWYE071006AUG04

PATIENT
  Sex: Female

DRUGS (1)
  1. PREMPHASE 14/14 [Suspect]

REACTIONS (4)
  - BREAST CANCER METASTATIC [None]
  - LUNG NEOPLASM [None]
  - METASTASES TO LYMPH NODES [None]
  - SPINAL OSTEOARTHRITIS [None]
